FAERS Safety Report 15494857 (Version 1)
Quarter: 2018Q4

REPORT INFORMATION
  Report Type: Spontaneous
  Country: GB (occurrence: GB)
  Receive Date: 20181012
  Receipt Date: 20181012
  Transmission Date: 20190205
  Serious: Yes (Other)
  Sender: FDA-Public Use
  Company Number: GB-TEVA-2018-GB-964013

PATIENT
  Age: 19 Year
  Sex: Female
  Weight: 60.77 kg

DRUGS (1)
  1. METRONIDAZOLE. [Suspect]
     Active Substance: METRONIDAZOLE
     Route: 048
     Dates: start: 20180915

REACTIONS (2)
  - Anxiety [Not Recovered/Not Resolved]
  - Panic attack [Unknown]
